FAERS Safety Report 6879456-0 (Version None)
Quarter: 2010Q3

REPORT INFORMATION
  Report Type: 
  Country: None (occurrence: None)
  Receive Date: 20100728
  Receipt Date: 20100716
  Transmission Date: 20110219
  Serious: Yes (Disabling, Other)
  Sender: FDA-Public Use
  Company Number: GB-WATSON-2010-09763

PATIENT
  Sex: Female

DRUGS (8)
  1. ALENDRONATE SODIUM (WATSON LABORATORIES) [Suspect]
     Indication: OSTEOPENIA
     Dosage: 70 MG, 1/WEEK
     Route: 048
     Dates: start: 20100101
  2. ALENDRONATE SODIUM (WATSON LABORATORIES) [Suspect]
     Dosage: 70 MG, 1/WEEK
     Dates: start: 20090101
  3. ALENDRONATE SODIUM (WATSON LABORATORIES) [Suspect]
     Dosage: 70 MG, 1/WEEK
     Dates: start: 20050614
  4. CITALOPRAM HYDROBROMIDE [Concomitant]
     Indication: ANXIETY
     Dosage: 20 MG, DAILY
     Route: 048
     Dates: start: 20100713
  5. DICLOFENAC [Concomitant]
     Indication: BACK PAIN
     Dosage: 50 MG, UNKNOWN
     Route: 048
     Dates: start: 20090626
  6. CALFOVIT D3                        /00278001/ [Concomitant]
     Indication: OSTEOPOROSIS
     Dosage: 1 DF, DAILY
     Route: 048
     Dates: start: 20070307
  7. ACETAMINOPHEN AND CODEINE PHOSPHATE [Concomitant]
     Indication: BACK PAIN
     Dosage: UP TO 8, DAILY
     Route: 048
     Dates: start: 20090706
  8. LEVOTHYROXINE [Concomitant]
     Indication: HYPOTHYROIDISM
     Dosage: 100 MG, DAILY
     Route: 048
     Dates: start: 20040312

REACTIONS (8)
  - ARTHRALGIA [None]
  - BACK PAIN [None]
  - DRUG WITHDRAWAL SYNDROME [None]
  - MUSCULOSKELETAL PAIN [None]
  - MYALGIA [None]
  - PAIN [None]
  - SCIATICA [None]
  - SUICIDAL IDEATION [None]
